FAERS Safety Report 25788403 (Version 1)
Quarter: 2025Q3

REPORT INFORMATION
  Report Type: Spontaneous
  Country: MY (occurrence: MY)
  Receive Date: 20250910
  Receipt Date: 20250910
  Transmission Date: 20251020
  Serious: Yes (Other)
  Sender: PFIZER
  Company Number: MY-PFIZER INC-202500178338

PATIENT
  Sex: Male

DRUGS (2)
  1. VORICONAZOLE [Interacting]
     Active Substance: VORICONAZOLE
     Dates: start: 202411, end: 202412
  2. NICOTINE [Interacting]
     Active Substance: NICOTINE

REACTIONS (3)
  - Drug interaction [Recovered/Resolved]
  - Blindness transient [Recovered/Resolved]
  - Hallucination [Recovered/Resolved]
